FAERS Safety Report 6423502-5 (Version None)
Quarter: 2009Q4

REPORT INFORMATION
  Report Type: 
  Country: None (occurrence: None)
  Receive Date: 20091102
  Receipt Date: 20091023
  Transmission Date: 20100525
  Serious: Yes (Hospitalization)
  Sender: FDA-Public Use
  Company Number: US-JNJFOC-20091008444

PATIENT
  Sex: Male
  Weight: 129.73 kg

DRUGS (2)
  1. REMICADE [Suspect]
     Dosage: 7 VIALS
     Route: 042
     Dates: start: 20090901, end: 20091009
  2. REMICADE [Suspect]
     Indication: PSORIATIC ARTHROPATHY
     Dosage: 1ST WEEK, 7 VIALS
     Route: 042
     Dates: start: 20090901, end: 20091009

REACTIONS (3)
  - BLOOD POTASSIUM DECREASED [None]
  - CARDIAC FAILURE CONGESTIVE [None]
  - NERVOUSNESS [None]
